FAERS Safety Report 4531806-6 (Version None)
Quarter: 2004Q4

REPORT INFORMATION
  Report Type: 
  Country: None (occurrence: None)
  Receive Date: 20041220
  Receipt Date: 20031222
  Transmission Date: 20050328
  Serious: Yes (Death, Hospitalization)
  Sender: FDA-Public Use
  Company Number: US-MERCK-0312USA02301

PATIENT
  Age: 54 Year
  Sex: Male
  Weight: 95 kg

DRUGS (10)
  1. VIOXX [Suspect]
     Route: 048
     Dates: start: 20000320, end: 20010210
  2. MEPERIDINE HYDROCHLORIDE [Concomitant]
     Route: 065
  3. CYTOTEC [Concomitant]
     Route: 065
  4. CELEBREX [Concomitant]
     Route: 065
  5. ACETAMINOPHEN [Concomitant]
     Route: 065
  6. OXYCONTIN [Concomitant]
     Route: 065
     Dates: end: 20010210
  7. NEURONTIN [Concomitant]
     Route: 065
  8. DOXYCYCLINE [Concomitant]
     Route: 065
  9. VALIUM [Concomitant]
     Route: 065
  10. VIAGRA [Concomitant]
     Route: 065
     Dates: start: 20000801, end: 20010210

REACTIONS (9)
  - ACUTE MYOCARDIAL INFARCTION [None]
  - ATHEROSCLEROSIS [None]
  - COMA [None]
  - CORONARY ARTERY THROMBOSIS [None]
  - ERECTILE DYSFUNCTION [None]
  - INTERVERTEBRAL DISC PROTRUSION [None]
  - LUNG INFILTRATION [None]
  - PAIN [None]
  - PROSTATITIS [None]
